FAERS Safety Report 9856969 (Version 1)
Quarter: 2014Q1

REPORT INFORMATION
  Report Type: Spontaneous
  Country: PL (occurrence: PL)
  Receive Date: 20140130
  Receipt Date: 20140130
  Transmission Date: 20141002
  Serious: Yes (Life-Threatening)
  Sender: FDA-Public Use
  Company Number: PHHY2014PL008518

PATIENT
  Age: 60 Year
  Sex: Female
  Weight: 61 kg

DRUGS (1)
  1. PACLITAXEL [Suspect]
     Indication: UTERINE CANCER
     Dosage: 288 MG, QD
     Route: 042
     Dates: start: 20130823, end: 20130823

REACTIONS (6)
  - Loss of consciousness [Recovered/Resolved]
  - Fall [Recovered/Resolved]
  - Pulse abnormal [Recovered/Resolved]
  - Mydriasis [Recovered/Resolved]
  - Rales [Recovered/Resolved]
  - Infusion site hypoaesthesia [Recovered/Resolved]
